FAERS Safety Report 5645975-8 (Version None)
Quarter: 2008Q1

REPORT INFORMATION
  Report Type: 
  Country: None (occurrence: None)
  Receive Date: 20080131
  Receipt Date: 20071207
  Transmission Date: 20080703
  Serious: Yes (Hospitalization)
  Sender: FDA-Public Use
  Company Number: 163-21880-07120440

PATIENT
  Age: 54 Year
  Sex: Female

DRUGS (8)
  1. REVLIMID [Suspect]
     Indication: MULTIPLE MYELOMA
     Dosage: 10 MG, DAILY 21D/28D, ORAL ; 10 MG, DAILY 21D/28D, ORAL
     Route: 048
     Dates: start: 20061218, end: 20071101
  2. REVLIMID [Suspect]
     Indication: MULTIPLE MYELOMA
     Dosage: 10 MG, DAILY 21D/28D, ORAL ; 10 MG, DAILY 21D/28D, ORAL
     Route: 048
     Dates: start: 20071101
  3. VELCADE [Concomitant]
  4. DECADRON [Concomitant]
  5. CITALOPRAM HYDROBROMIDE [Concomitant]
  6. HYDROMORPHONE HCL [Concomitant]
  7. LACTULOSE [Concomitant]
  8. BISACODYL (BISACODYL) [Concomitant]

REACTIONS (2)
  - ANAEMIA [None]
  - PNEUMONIA [None]
